FAERS Safety Report 12539765 (Version 1)
Quarter: 2016Q3

REPORT INFORMATION
  Report Type: Spontaneous
  Country: US (occurrence: None)
  Receive Date: 20160707
  Receipt Date: 20160707
  Transmission Date: 20161109
  Serious: Yes (Other)
  Sender: FDA-Public Use
  Company Number: None

PATIENT
  Age: 66 Year
  Sex: Female
  Weight: 49.9 kg

DRUGS (4)
  1. VITAMIN D3 [Concomitant]
     Active Substance: CHOLECALCIFEROL
  2. LUTEIN WITH ZEAXANTHIN [Concomitant]
  3. PRAVASTATIN SODIUM 10 MG GLENMARK [Suspect]
     Active Substance: PRAVASTATIN SODIUM
     Indication: HYPERCHOLESTEROLAEMIA
     Dosage: ONE TABLET DAILY BY MOUTH
     Route: 048
     Dates: start: 20160413, end: 20160529
  4. RELIV CLASSIC AND ARTHAFFECT NUTRITIONAL SUPPLEMENTS [Concomitant]

REACTIONS (7)
  - Product substitution issue [None]
  - Palpitations [None]
  - Dyspnoea [None]
  - Dizziness [None]
  - Paraesthesia [None]
  - Peripheral swelling [None]
  - Product label issue [None]

NARRATIVE: CASE EVENT DATE: 20160421
